FAERS Safety Report 16928148 (Version 3)
Quarter: 2019Q4

REPORT INFORMATION
  Report Type: Spontaneous
  Country: US (occurrence: US)
  Receive Date: 20191017
  Receipt Date: 20191227
  Transmission Date: 20200122
  Serious: Yes (Other)
  Sender: FDA-Public Use
  Company Number: US-PACIRA-201900331

PATIENT
  Age: 50 Year
  Sex: Male

DRUGS (3)
  1. EXPAREL [Suspect]
     Active Substance: BUPIVACAINE
     Indication: NEURECTOMY
     Dosage: 20 ML WITH 30 ML BUPVICAINE 0.5%
     Dates: start: 20190808, end: 20190808
  2. CHLORAPREP [Suspect]
     Active Substance: CHLORHEXIDINE GLUCONATE\ISOPROPYL ALCOHOL
     Indication: PREOPERATIVE CARE
     Dosage: 26 ML; ABDOMEN AND BILATERAL GROIN
     Route: 061
     Dates: start: 20190808, end: 20190808
  3. MARCAINE [Suspect]
     Active Substance: BUPIVACAINE HYDROCHLORIDE
     Indication: NEURECTOMY
     Dosage: 30 ML WITH 20 ML EXPAREL 1.3%
     Dates: start: 20190808, end: 20190808

REACTIONS (9)
  - Incision site pain [Not Recovered/Not Resolved]
  - Hypertension [Not Recovered/Not Resolved]
  - Hallucination [Not Recovered/Not Resolved]
  - Genital swelling [Not Recovered/Not Resolved]
  - Genital contusion [Not Recovered/Not Resolved]
  - Anxiety [Not Recovered/Not Resolved]
  - Dysarthria [Not Recovered/Not Resolved]
  - Incision site swelling [Not Recovered/Not Resolved]
  - Restlessness [Not Recovered/Not Resolved]
